FAERS Safety Report 14873423 (Version 1)
Quarter: 2018Q2

REPORT INFORMATION
  Report Type: Report from Study
  Country: SE (occurrence: SE)
  Receive Date: 20180510
  Receipt Date: 20180510
  Transmission Date: 20180711
  Serious: Yes (Hospitalization)
  Sender: FDA-Public Use
  Company Number: SE-ROCHE-2116718

PATIENT
  Age: 81 Year
  Sex: Male

DRUGS (17)
  1. RITUXIMAB. [Suspect]
     Active Substance: RITUXIMAB
     Indication: ANTI-NEUTROPHIL CYTOPLASMIC ANTIBODY POSITIVE VASCULITIS
     Dosage: LAST DOSE ON 20/DEC/2016
     Route: 042
     Dates: start: 20150831
  2. FUROSEMID [Concomitant]
     Active Substance: FUROSEMIDE
     Route: 065
     Dates: start: 20171024
  3. AMLODIPIN [Concomitant]
     Active Substance: AMLODIPINE BESYLATE
     Route: 065
  4. CANODERM [Concomitant]
     Route: 065
     Dates: start: 20111128
  5. PREDNISOLONE. [Concomitant]
     Active Substance: PREDNISOLONE
     Route: 065
     Dates: start: 20180302
  6. BACTRIM [Concomitant]
     Active Substance: SULFAMETHOXAZOLE\TRIMETHOPRIM
     Dosage: 400MG/80MG
     Route: 065
     Dates: start: 20150501
  7. RITUXIMAB. [Suspect]
     Active Substance: RITUXIMAB
     Route: 042
     Dates: start: 20180309
  8. RAMIPRIL. [Concomitant]
     Active Substance: RAMIPRIL
     Route: 065
     Dates: start: 20170427
  9. METOPROLOL SANDOZ [Concomitant]
     Active Substance: METOPROLOL
     Route: 065
  10. KALCIPOS-D FORTE [Concomitant]
     Active Substance: CALCIUM CARBONATE\CHOLECALCIFEROL
     Dosage: 500MG/800 IE
     Route: 065
     Dates: start: 20111128
  11. ALVEDON [Concomitant]
     Active Substance: ACETAMINOPHEN
     Route: 065
  12. RITUXIMAB. [Suspect]
     Active Substance: RITUXIMAB
     Dosage: MOST RECENT DOSE PRIOR TO SAE ONSET IN THE FOLLOW UP PERIOD OF THE STUDY.
     Route: 042
     Dates: start: 20180323
  13. INNOHEP [Concomitant]
     Active Substance: TINZAPARIN SODIUM
     Route: 065
     Dates: start: 20180423, end: 20180503
  14. ONDANSETRON BRAUN [Concomitant]
     Dosage: 2 MG/ML
     Route: 065
     Dates: start: 20180423, end: 20180424
  15. BEZALIP [Concomitant]
     Active Substance: BEZAFIBRATE
     Route: 065
     Dates: start: 20170428
  16. PIPERACILLIN/TAZOBACTAM [Concomitant]
     Active Substance: PIPERACILLIN SODIUM\TAZOBACTAM SODIUM
     Route: 065
     Dates: start: 20180423, end: 20180427
  17. ALLOPURINOL. [Concomitant]
     Active Substance: ALLOPURINOL
     Route: 065
     Dates: start: 20130218

REACTIONS (1)
  - Duodenal ulcer perforation [Recovered/Resolved]

NARRATIVE: CASE EVENT DATE: 20180423
